FAERS Safety Report 13576954 (Version 1)
Quarter: 2017Q2

REPORT INFORMATION
  Report Type: Spontaneous
  Country: GB (occurrence: GB)
  Receive Date: 20170524
  Receipt Date: 20170524
  Transmission Date: 20170830
  Serious: Yes (Other)
  Sender: FDA-Public Use
  Company Number: GB-ABBVIE-17P-167-1845619-00

PATIENT
  Age: 30 Year
  Sex: Female
  Weight: 66.74 kg

DRUGS (2)
  1. HUMIRA [Suspect]
     Active Substance: ADALIMUMAB
     Indication: UVEITIS
     Route: 058
     Dates: start: 201506, end: 201605
  2. MAXIDEX [Concomitant]
     Active Substance: DEXAMETHASONE
     Indication: PRODUCT USED FOR UNKNOWN INDICATION
     Route: 065
     Dates: start: 201502

REACTIONS (4)
  - Demyelination [Recovered/Resolved]
  - White matter lesion [Unknown]
  - Paraesthesia [Recovered/Resolved]
  - Lhermitte^s sign [Recovered/Resolved]

NARRATIVE: CASE EVENT DATE: 201604
